FAERS Safety Report 6756779-7 (Version None)
Quarter: 2010Q2

REPORT INFORMATION
  Report Type: 
  Country: None (occurrence: None)
  Receive Date: 20100604
  Receipt Date: 20100526
  Transmission Date: 20101027
  Serious: Yes (Other)
  Sender: FDA-Public Use
  Company Number: US-JNJFOC-20100510538

PATIENT
  Age: 41 Year
  Sex: Female
  Weight: 57.61 kg

DRUGS (1)
  1. EXTRA STRENGTH TYLENOL PM [Suspect]
     Indication: MIGRAINE
     Dosage: 4-8 CAPLETS DAILY
     Route: 048

REACTIONS (4)
  - BLOOD URINE PRESENT [None]
  - HEPATIC PAIN [None]
  - INCORRECT DOSE ADMINISTERED [None]
  - INTENTIONAL DRUG MISUSE [None]
